FAERS Safety Report 18863434 (Version 1)
Quarter: 2021Q1

REPORT INFORMATION
  Report Type: Spontaneous
  Country: GB (occurrence: GB)
  Receive Date: 20210209
  Receipt Date: 20210209
  Transmission Date: 20210420
  Serious: Yes (Hospitalization)
  Sender: FDA-Public Use
  Company Number: GB-ACCORD-216614

PATIENT
  Age: 43 Year
  Sex: Female

DRUGS (5)
  1. DEPO?MEDRONE [Concomitant]
     Active Substance: METHYLPREDNISOLONE
     Indication: ILL-DEFINED DISORDER
  2. CARBAMAZEPINE. [Suspect]
     Active Substance: CARBAMAZEPINE
     Indication: ILL-DEFINED DISORDER
     Route: 048
  3. ADCAL?D3 [Concomitant]
     Active Substance: CALCIUM CARBONATE\CHOLECALCIFEROL
     Indication: ILL-DEFINED DISORDER
  4. AMITRIPTYLINE [Suspect]
     Active Substance: AMITRIPTYLINE
     Indication: ILL-DEFINED DISORDER
     Route: 048
  5. CODEINE [Concomitant]
     Active Substance: CODEINE
     Indication: ILL-DEFINED DISORDER

REACTIONS (1)
  - Hyponatraemia [Recovering/Resolving]
